FAERS Safety Report 5207659-X (Version None)
Quarter: 2007Q1

REPORT INFORMATION
  Report Type: 
  Country: None (occurrence: None)
  Receive Date: 20070112
  Receipt Date: 20070102
  Transmission Date: 20070707
  Serious: Yes (Disabling)
  Sender: FDA-Public Use
  Company Number: US-PFIZER INC-2006146938

PATIENT
  Age: 58 Year
  Sex: Female

DRUGS (1)
  1. ZMAX [Suspect]
     Indication: SINUSITIS

REACTIONS (6)
  - DIARRHOEA [None]
  - DISCOMFORT [None]
  - NAUSEA [None]
  - PAIN [None]
  - STOMACH DISCOMFORT [None]
  - WEIGHT DECREASED [None]
